FAERS Safety Report 4702656-2 (Version None)
Quarter: 2005Q2

REPORT INFORMATION
  Report Type: 
  Country: None (occurrence: None)
  Receive Date: 20050629
  Receipt Date: 20040917
  Transmission Date: 20051028
  Serious: No
  Sender: FDA-Public Use
  Company Number: US-GLAXOSMITHKLINE-A0526192A

PATIENT
  Sex: Female

DRUGS (2)
  1. ZYBAN [Suspect]
     Dosage: 150MCG PER DAY
     Route: 048
     Dates: start: 20040901
  2. NO CONCURRENT MEDICATION [Concomitant]

REACTIONS (1)
  - EUPHORIC MOOD [None]
